FAERS Safety Report 18045017 (Version 1)
Quarter: 2020Q3

REPORT INFORMATION
  Report Type: Spontaneous
  Country: FR (occurrence: FR)
  Receive Date: 20200720
  Receipt Date: 20200720
  Transmission Date: 20201103
  Serious: Yes (Hospitalization)
  Sender: FDA-Public Use
  Company Number: FR-MYLANLABS-2020M1064219

PATIENT
  Age: 93 Year
  Sex: Male
  Weight: 68.9 kg

DRUGS (7)
  1. GALANTAMINE. [Suspect]
     Active Substance: GALANTAMINE
     Indication: DEMENTIA ALZHEIMER^S TYPE
     Dosage: 16 MILLIGRAM, QD
     Route: 048
     Dates: end: 20200605
  2. LERCANIDIPINE [Suspect]
     Active Substance: LERCANIDIPINE
     Indication: HYPERTENSION
     Dosage: 10 MILLIGRAM, QD
     Route: 048
  3. TANAKAN [Suspect]
     Active Substance: GINKGO
     Indication: PRODUCT USED FOR UNKNOWN INDICATION
     Dosage: 120 MILLIGRAM, QD
     Route: 048
     Dates: end: 20200605
  4. KARDEGIC [Suspect]
     Active Substance: ASPIRIN DL-LYSINE
     Indication: PRODUCT USED FOR UNKNOWN INDICATION
     Dosage: 1 DOSAGE FORM, QD
     Route: 048
     Dates: end: 20200605
  5. SPIRONOLACTONE. [Suspect]
     Active Substance: SPIRONOLACTONE
     Indication: HYPERTENSION
     Dosage: UNK
     Route: 048
  6. ALTIZIDE [Suspect]
     Active Substance: ALTHIAZIDE
     Indication: HYPERTENSION
     Dosage: UNK
     Route: 048
  7. TIANEPTINE [Suspect]
     Active Substance: TIANEPTINE
     Indication: PRODUCT USED FOR UNKNOWN INDICATION
     Dosage: 25 MILLIGRAM, QD
     Route: 048

REACTIONS (6)
  - Aphasia [Not Recovered/Not Resolved]
  - Cerebral haemorrhage [Recovering/Resolving]
  - Subarachnoid haemorrhage [Recovering/Resolving]
  - Hemiplegia [Not Recovered/Not Resolved]
  - Fall [Not Recovered/Not Resolved]
  - Epilepsy [Recovered/Resolved]

NARRATIVE: CASE EVENT DATE: 20200605
